FAERS Safety Report 7213814-X (Version None)
Quarter: 2011Q1

REPORT INFORMATION
  Report Type: 
  Country: None (occurrence: None)
  Receive Date: 20110106
  Receipt Date: 20101230
  Transmission Date: 20110831
  Serious: Yes (Hospitalization)
  Sender: FDA-Public Use
  Company Number: GB-PFIZER INC-2010182330

PATIENT
  Sex: Male

DRUGS (10)
  1. KEPPRA [Suspect]
     Dosage: 500 MG, 2X/DAY
  2. DEXAMETHASONE [Concomitant]
     Dosage: 0.5 MG, UNK
     Route: 048
  3. TAMSULOSIN HYDROCHLORIDE [Concomitant]
     Dosage: 400 UG, 1X/DAY
  4. KEPPRA [Suspect]
     Dosage: 250 MG, 2X/DAY
     Dates: start: 20091231
  5. KEPPRA [Suspect]
     Dosage: 1000 MG, 2X/DAY
  6. LAMOTRIGINE [Suspect]
  7. OMEPRAZOLE [Concomitant]
     Dosage: 20 MG, UNK
     Route: 048
  8. SOLIFENACIN SUCCINATE [Concomitant]
     Dosage: UNK
  9. DIAZEPAM [Concomitant]
  10. LYRICA [Suspect]
     Dosage: 50 MG, 3X/DAY

REACTIONS (6)
  - VISUAL IMPAIRMENT [None]
  - SYNCOPE [None]
  - ABNORMAL DREAMS [None]
  - DRUG DISPENSING ERROR [None]
  - CONVULSION [None]
  - FEELING DRUNK [None]
